FAERS Safety Report 6916081-7 (Version None)
Quarter: 2010Q3

REPORT INFORMATION
  Report Type: 
  Country: None (occurrence: None)
  Receive Date: 20100810
  Receipt Date: 20100802
  Transmission Date: 20110219
  Serious: No
  Sender: FDA-Public Use
  Company Number: US-BIOGENIDEC-2010BI023538

PATIENT
  Sex: Female

DRUGS (2)
  1. TYSABRI [Suspect]
     Indication: MULTIPLE SCLEROSIS
     Route: 042
     Dates: start: 20061101
  2. TYSABRI [Suspect]
     Route: 042
     Dates: start: 20080812

REACTIONS (6)
  - FATIGUE [None]
  - GENERAL SYMPTOM [None]
  - INFLUENZA LIKE ILLNESS [None]
  - MEMORY IMPAIRMENT [None]
  - MOBILITY DECREASED [None]
  - MULTIPLE SCLEROSIS [None]
